FAERS Safety Report 4410571-7 (Version None)
Quarter: 2004Q3

REPORT INFORMATION
  Report Type: 
  Country: None (occurrence: None)
  Receive Date: 20040726
  Receipt Date: 20040713
  Transmission Date: 20050211
  Serious: Yes (Other)
  Sender: FDA-Public Use
  Company Number: US-JNJFOC-20040703876

PATIENT
  Sex: Female

DRUGS (9)
  1. DURAGESIC [Suspect]
     Indication: PAIN
     Dosage: 75 UG/HR, 1 IN 72 HOUR, TRANSDERMAL
     Route: 062
  2. BENADRYL (DIPHENHYDRAMINE HYDROCHLORIDE) CAPSULES [Concomitant]
  3. EFFEXOR [Concomitant]
  4. WELLBUTRIN [Concomitant]
  5. SYNTHROID [Concomitant]
  6. VALIUM [Concomitant]
  7. TRAZODONE HCL [Concomitant]
  8. COUMADIN [Concomitant]
  9. LASIX [Concomitant]

REACTIONS (8)
  - CONSTIPATION [None]
  - DIZZINESS [None]
  - DYSKINESIA [None]
  - HYPERHIDROSIS [None]
  - OEDEMA PERIPHERAL [None]
  - PRURITUS GENERALISED [None]
  - PULMONARY EMBOLISM [None]
  - RASH PUSTULAR [None]
